FAERS Safety Report 8138300-4 (Version None)
Quarter: 2012Q1

REPORT INFORMATION
  Report Type: 
  Country: None (occurrence: None)
  Receive Date: 20120215
  Receipt Date: 20120102
  Transmission Date: 20120608
  Serious: Yes (Life-Threatening)
  Sender: FDA-Public Use
  Company Number: SK-JNJFOC-20120113521

PATIENT
  Sex: Female

DRUGS (1)
  1. REMICADE [Suspect]
     Indication: CROHN'S DISEASE
     Route: 042
     Dates: start: 20111129, end: 20111129

REACTIONS (5)
  - CHEST PAIN [None]
  - RASH ERYTHEMATOUS [None]
  - THROAT TIGHTNESS [None]
  - DYSPNOEA [None]
  - INFUSION RELATED REACTION [None]
